FAERS Safety Report 10486373 (Version 2)
Quarter: 2014Q4

REPORT INFORMATION
  Report Type: Spontaneous
  Country: US (occurrence: US)
  Receive Date: 20141001
  Receipt Date: 20141001
  Transmission Date: 20150528
  Serious: Yes (Hospitalization)
  Sender: FDA-Public Use
  Company Number: US-PERRIGO-14US009432

PATIENT
  Age: 3 Year
  Sex: Male
  Weight: 14.14 kg

DRUGS (2)
  1. ACETAMINOPHEN CHILD CHERRY 32 MG/ML 175 [Suspect]
     Active Substance: ACETAMINOPHEN
     Indication: ORAL PAIN
     Dosage: 160 MG, SINGLE
     Route: 048
     Dates: start: 20140919, end: 20140919
  2. ACETAMINOPHEN CHILD CHERRY 32 MG/ML 175 [Suspect]
     Active Substance: ACETAMINOPHEN
     Indication: ACCIDENTAL EXPOSURE TO PRODUCT
     Dosage: UNK, SINGLE
     Route: 048
     Dates: start: 20140919, end: 20140919

REACTIONS (3)
  - Drug level increased [Recovered/Resolved]
  - Overdose [Recovered/Resolved]
  - Accidental exposure to product by child [None]

NARRATIVE: CASE EVENT DATE: 20140919
